FAERS Safety Report 17641602 (Version 1)
Quarter: 2020Q2

REPORT INFORMATION
  Report Type: Spontaneous
  Country: US (occurrence: US)
  Receive Date: 20200407
  Receipt Date: 20200407
  Transmission Date: 20200713
  Serious: Yes (Other)
  Sender: FDA-Public Use
  Company Number: US-JAZZ-2020-US-001985

PATIENT
  Age: 46 Year
  Sex: Female

DRUGS (1)
  1. XYREM [Suspect]
     Active Substance: SODIUM OXYBATE
     Indication: PRODUCT USED FOR UNKNOWN INDICATION
     Dosage: DOSE AND FREQUENCY UNKNOWN
     Route: 048

REACTIONS (11)
  - Foot fracture [Unknown]
  - Head injury [Unknown]
  - Abnormal behaviour [Recovered/Resolved]
  - Facial bones fracture [Unknown]
  - Tachycardia [Recovered/Resolved]
  - Ecchymosis [Unknown]
  - Contusion [Unknown]
  - Overdose [Unknown]
  - Suicide attempt [Unknown]
  - Agitation [Recovered/Resolved]
  - Hypertension [Recovered/Resolved]
